FAERS Safety Report 5206124-3 (Version None)
Quarter: 2007Q1

REPORT INFORMATION
  Report Type: 
  Country: None (occurrence: None)
  Receive Date: 20070108
  Receipt Date: 20070103
  Transmission Date: 20070707
  Serious: Yes (Other)
  Sender: FDA-Public Use
  Company Number: 234548

PATIENT
  Age: 55 Year
  Sex: Female

DRUGS (2)
  1. HERCEPTIN [Suspect]
     Indication: BREAST CANCER METASTATIC
     Dosage: 2 MG/KG, 1/WEEK,
  2. DOCETAXEL (DOCETAXEL) [Suspect]
     Indication: BREAST CANCER METASTATIC
     Dosage: 70 MG/KG, 1/WEEK

REACTIONS (7)
  - DISEASE PROGRESSION [None]
  - HYPERKERATOSIS [None]
  - MALIGNANT NEOPLASM PROGRESSION [None]
  - NAIL DYSTROPHY [None]
  - ONYCHOLYSIS [None]
  - SKIN DISCOLOURATION [None]
  - SKIN EXFOLIATION [None]
